FAERS Safety Report 22339693 (Version 1)
Quarter: 2023Q2

REPORT INFORMATION
  Report Type: Report from Study
  Country: US (occurrence: US)
  Receive Date: 20230518
  Receipt Date: 20230518
  Transmission Date: 20230721
  Serious: Yes (Disabling, Other)
  Sender: FDA-Public Use
  Company Number: US-JNJFOC-20230526422

PATIENT
  Age: 72 Year
  Sex: Male
  Weight: 99.8 kg

DRUGS (4)
  1. DARATUMUMAB [Suspect]
     Active Substance: DARATUMUMAB
     Indication: Plasma cell myeloma
     Dosage: MOST RECENT DOSE ADMINISTERED ON 11-APR-2023
     Route: 058
     Dates: start: 20230113
  2. LENALIDOMIDE [Suspect]
     Active Substance: LENALIDOMIDE
     Indication: Plasma cell myeloma
     Dosage: MOST RECENT DOSE WAS ADMINISTERED ON 10-APR-2023
     Route: 048
     Dates: start: 20230113
  3. PLAVIX [Concomitant]
     Active Substance: CLOPIDOGREL BISULFATE
  4. SINEMET [Concomitant]
     Active Substance: CARBIDOPA\LEVODOPA

REACTIONS (1)
  - Ophthalmic vascular thrombosis [Not Recovered/Not Resolved]

NARRATIVE: CASE EVENT DATE: 20230425
